FAERS Safety Report 5914713-3 (Version None)
Quarter: 2008Q4

REPORT INFORMATION
  Report Type: 
  Country: None (occurrence: None)
  Receive Date: 20081010
  Receipt Date: 20081001
  Transmission Date: 20090506
  Serious: Yes (Other)
  Sender: FDA-Public Use
  Company Number: ZA-JNJFOC-20080900594

PATIENT
  Sex: Female

DRUGS (1)
  1. TOPAMAX [Suspect]
     Indication: BIPOLAR DISORDER

REACTIONS (3)
  - BLINDNESS [None]
  - CANDIDIASIS [None]
  - UVEITIS [None]
